FAERS Safety Report 23624261 (Version 1)
Quarter: 2024Q1

REPORT INFORMATION
  Report Type: Spontaneous
  Country: US (occurrence: US)
  Receive Date: 20240312
  Receipt Date: 20240312
  Transmission Date: 20240409
  Serious: No
  Sender: FDA-Public Use
  Company Number: US-PRIMUS-2023-US-005664

PATIENT
  Age: 70 Year
  Sex: Female

DRUGS (1)
  1. SERNIVO [Suspect]
     Active Substance: BETAMETHASONE DIPROPIONATE
     Indication: Rash
     Dosage: APPLY TO SCALP ONCE A DAY
     Route: 061

REACTIONS (4)
  - Pruritus [Unknown]
  - Incorrect product administration duration [Recovered/Resolved]
  - Condition aggravated [Unknown]
  - Product use in unapproved indication [Recovered/Resolved]
